FAERS Safety Report 17824391 (Version 1)
Quarter: 2020Q2

REPORT INFORMATION
  Report Type: Spontaneous
  Country: US (occurrence: US)
  Receive Date: 20200526
  Receipt Date: 20200526
  Transmission Date: 20200714
  Serious: No
  Sender: FDA-Public Use
  Company Number: US-BIOGEN-2020BI00837298

PATIENT
  Sex: Female

DRUGS (5)
  1. TECFIDERA [Suspect]
     Active Substance: DIMETHYL FUMARATE
     Indication: MULTIPLE SCLEROSIS
     Dosage: FOR WEEK 1 AND 2
     Route: 065
  2. TECFIDERA [Suspect]
     Active Substance: DIMETHYL FUMARATE
     Route: 065
     Dates: start: 20191205, end: 20200521
  3. TECFIDERA [Suspect]
     Active Substance: DIMETHYL FUMARATE
     Route: 065
     Dates: start: 20190106
  4. TECFIDERA [Suspect]
     Active Substance: DIMETHYL FUMARATE
     Dosage: FOR WEEK 3 AND 4
     Route: 065
  5. TECFIDERA [Suspect]
     Active Substance: DIMETHYL FUMARATE
     Dosage: BREAKFAST AND DINNER FROM WEEK 5 AND BEYOND
     Route: 065
     Dates: start: 202001

REACTIONS (16)
  - Musculoskeletal pain [Not Recovered/Not Resolved]
  - Flushing [Unknown]
  - Asthenia [Unknown]
  - Discomfort [Unknown]
  - Feeling hot [Recovered/Resolved]
  - Night sweats [Not Recovered/Not Resolved]
  - Headache [Not Recovered/Not Resolved]
  - Drug ineffective [Unknown]
  - Gastric ulcer [Not Recovered/Not Resolved]
  - Stress [Unknown]
  - Chest discomfort [Unknown]
  - Muscular weakness [Recovered/Resolved]
  - Abdominal pain upper [Unknown]
  - Neck pain [Not Recovered/Not Resolved]
  - Erythema [Recovered/Resolved]
  - Gastric disorder [Unknown]

NARRATIVE: CASE EVENT DATE: 2019
